FAERS Safety Report 9005084 (Version 1)
Quarter: 2013Q1

REPORT INFORMATION
  Report Type: Spontaneous
  Country: US (occurrence: US)
  Receive Date: 20130109
  Receipt Date: 20130109
  Transmission Date: 20140127
  Serious: No
  Sender: FDA-Public Use
  Company Number: US-BAYER-2012-134670

PATIENT
  Age: 15 Year
  Sex: Female
  Weight: 61.22 kg

DRUGS (5)
  1. BETASERON [Suspect]
     Dosage: 0.25 MG, QOD
     Route: 058
  2. AMOXICILLIN [Concomitant]
  3. WELLBUTRIN [Concomitant]
  4. PROZAC [Concomitant]
  5. VITAMIN D2 [Concomitant]

REACTIONS (1)
  - Injection site reaction [Unknown]
